FAERS Safety Report 17446641 (Version 1)
Quarter: 2020Q1

REPORT INFORMATION
  Report Type: Report from Study
  Country: IT (occurrence: IT)
  Receive Date: 20200221
  Receipt Date: 20200221
  Transmission Date: 20200409
  Serious: Yes (Other)
  Sender: FDA-Public Use
  Company Number: IT-ELI_LILLY_AND_COMPANY-IT202002009776

PATIENT
  Age: 71 Year
  Sex: Male
  Weight: 80 kg

DRUGS (6)
  1. PANTOPRAZOLE [Concomitant]
     Active Substance: PANTOPRAZOLE
     Indication: PRODUCT USED FOR UNKNOWN INDICATION
     Dosage: 20 MG, UNK
  2. CETUXIMAB. [Suspect]
     Active Substance: CETUXIMAB
     Indication: LARYNGEAL CANCER RECURRENT
     Dosage: 400 MG, CYCLICAL
     Route: 042
     Dates: start: 20191121
  3. CISPLATINO ACCORD [Suspect]
     Active Substance: CISPLATIN
     Indication: LARYNGEAL CANCER RECURRENT
     Dosage: 65 MG, UNK
     Route: 042
     Dates: start: 20191121
  4. DOXYCYCLINE. [Concomitant]
     Active Substance: DOXYCYCLINE
     Indication: PRODUCT USED FOR UNKNOWN INDICATION
     Dosage: UNK
  5. DEXAMETHASONE. [Concomitant]
     Active Substance: DEXAMETHASONE
     Indication: PRODUCT USED FOR UNKNOWN INDICATION
     Dosage: UNK
  6. PACLITAXEL KABI [Suspect]
     Active Substance: PACLITAXEL
     Indication: LARYNGEAL CANCER RECURRENT
     Dosage: 250 MG, UNK
     Route: 042
     Dates: start: 20191121

REACTIONS (2)
  - Neutropenia [Recovering/Resolving]
  - Leukopenia [Recovering/Resolving]

NARRATIVE: CASE EVENT DATE: 20191231
